FAERS Safety Report 7540671-4 (Version None)
Quarter: 2011Q2

REPORT INFORMATION
  Report Type: 
  Country: None (occurrence: None)
  Receive Date: 20110610
  Receipt Date: 20110609
  Transmission Date: 20111010
  Serious: Yes (Other)
  Sender: FDA-Public Use
  Company Number: PT-ABBOTT-11P-130-0730306-00

PATIENT
  Sex: Male

DRUGS (3)
  1. ABACAVIR SULFATE AND LAMIVUDINE [Concomitant]
     Indication: HIV INFECTION
     Route: 048
     Dates: start: 20101025, end: 20110501
  2. NORVIR [Suspect]
     Indication: HIV INFECTION
     Dosage: 100MG DAILY
     Route: 048
     Dates: start: 20101025, end: 20110501
  3. PREZISTA [Suspect]
     Indication: HIV INFECTION
     Dosage: 800MG DAILY, (400MG 2 IN 1 DAY)
     Route: 048
     Dates: start: 20101025, end: 20110501

REACTIONS (4)
  - ASTHENIA [None]
  - NAUSEA [None]
  - MALAISE [None]
  - HEPATOTOXICITY [None]
